FAERS Safety Report 25089279 (Version 1)
Quarter: 2025Q1

REPORT INFORMATION
  Report Type: Spontaneous
  Country: CA (occurrence: CA)
  Receive Date: 20250318
  Receipt Date: 20250318
  Transmission Date: 20250409
  Serious: Yes (Hospitalization)
  Sender: NOVARTIS
  Company Number: CA-SANDOZ-SDZ2024CA002851

PATIENT
  Sex: Female

DRUGS (2)
  1. CAPECITABINE [Suspect]
     Active Substance: CAPECITABINE
     Indication: Product used for unknown indication
     Route: 065
  2. TYKERB [Suspect]
     Active Substance: LAPATINIB DITOSYLATE
     Indication: Breast cancer metastatic
     Route: 048

REACTIONS (8)
  - Metastases to central nervous system [Unknown]
  - Pelvic fracture [Unknown]
  - Spinal fracture [Unknown]
  - Brain neoplasm [Unknown]
  - Fall [Unknown]
  - Limb injury [Unknown]
  - Gait disturbance [Unknown]
  - Asthenia [Unknown]
